FAERS Safety Report 19490573 (Version 1)
Quarter: 2021Q3

REPORT INFORMATION
  Report Type: Spontaneous
  Country: US (occurrence: US)
  Receive Date: 20210705
  Receipt Date: 20210705
  Transmission Date: 20211014
  Serious: No
  Sender: FDA-Public Use
  Company Number: US-ELI_LILLY_AND_COMPANY-US202107000752

PATIENT
  Sex: Female

DRUGS (2)
  1. REYVOW [Suspect]
     Active Substance: LASMIDITAN
     Indication: MIGRAINE
     Dosage: 100 MG, UNKNOWN
     Route: 065
  2. REYVOW [Suspect]
     Active Substance: LASMIDITAN
     Dosage: 50 MG, UNKNOWN
     Route: 065

REACTIONS (3)
  - Fatigue [Unknown]
  - Asthenia [Unknown]
  - Fall [Unknown]
